FAERS Safety Report 13303580 (Version 4)
Quarter: 2017Q2

REPORT INFORMATION
  Report Type: Report from Study
  Country: US (occurrence: US)
  Receive Date: 20170307
  Receipt Date: 20170622
  Transmission Date: 20170830
  Serious: Yes (Death, Hospitalization, Disabling, Other)
  Sender: FDA-Public Use
  Company Number: US-ACTELION-A-NJ2017-150577

PATIENT
  Age: 62 Year
  Sex: Male

DRUGS (1)
  1. TRACLEER [Suspect]
     Active Substance: BOSENTAN
     Indication: PULMONARY ARTERIAL HYPERTENSION
     Dosage: 125 MG, BID
     Route: 048

REACTIONS (4)
  - Lung neoplasm malignant [Unknown]
  - Unresponsive to stimuli [Unknown]
  - Death [Fatal]
  - Loss of consciousness [Unknown]

NARRATIVE: CASE EVENT DATE: 201705
